FAERS Safety Report 5260758-9 (Version None)
Quarter: 2007Q1

REPORT INFORMATION
  Report Type: 
  Country: None (occurrence: None)
  Receive Date: 20061208
  Receipt Date: 20050713
  Transmission Date: 20070707
  Serious: Yes (Hospitalization)
  Sender: FDA-Public Use
  Company Number: 2005UW10498

PATIENT
  Age: 13 Year
  Sex: Male

DRUGS (1)
  1. NEXIUM [Suspect]
     Dates: start: 20030101

REACTIONS (1)
  - PANCREATITIS [None]
